FAERS Safety Report 5375004-5 (Version None)
Quarter: 2007Q2

REPORT INFORMATION
  Report Type: 
  Country: None (occurrence: None)
  Receive Date: 20070629
  Receipt Date: 20070312
  Transmission Date: 20071010
  Serious: No
  Sender: FDA-Public Use
  Company Number: A0642859A

PATIENT
  Age: 241 Day
  Sex: Male

DRUGS (3)
  1. FLOVENT [Suspect]
     Indication: COUGH
     Dosage: 2PUFF PER DAY
     Route: 055
     Dates: start: 20070310
  2. SINGULAIR [Concomitant]
  3. PREVACID [Concomitant]

REACTIONS (2)
  - OVERDOSE [None]
  - PSYCHOMOTOR HYPERACTIVITY [None]
